FAERS Safety Report 20367203 (Version 1)
Quarter: 2022Q1

REPORT INFORMATION
  Report Type: Spontaneous
  Country: CN (occurrence: CN)
  Receive Date: 20220123
  Receipt Date: 20220123
  Transmission Date: 20220423
  Serious: Yes (Hospitalization)
  Sender: FDA-Public Use
  Company Number: CN-BAXTER-2022BAX001350

PATIENT
  Age: 54 Year
  Sex: Female
  Weight: 62 kg

DRUGS (6)
  1. CYCLOPHOSPHAMIDE [Suspect]
     Active Substance: CYCLOPHOSPHAMIDE
     Indication: Breast cancer female
     Dosage: 0.9% SODIUM CHLORIDE INJECTION 100ML + CYCLOPHOSPHAMIDE FOR INJECTION 900 MG IVGTT ST D1 Q14D
     Route: 041
     Dates: start: 20220103, end: 20220103
  2. SODIUM CHLORIDE [Suspect]
     Active Substance: SODIUM CHLORIDE
     Indication: Medication dilution
     Dosage: 0.9% SODIUM CHLORIDE INJECTION 100ML PLUS CYCLOPHOSPHAMIDE FOR INJECTION 900 MG IVGTT ST D1 Q14D
     Route: 041
     Dates: start: 20220103, end: 20220103
  3. DEXTROSE [Suspect]
     Active Substance: DEXTROSE
     Indication: Medication dilution
     Dosage: 5% GLUCOSE INJECTION 100ML PLUS PIRARUBICIN HYDROCHLORIDE FOR INJECTION 90 MG IVGTT ST D1 Q14D
     Route: 041
     Dates: start: 20220103, end: 20220103
  4. PIRARUBICIN HYDROCHLORIDE [Suspect]
     Active Substance: PIRARUBICIN HYDROCHLORIDE
     Indication: Breast cancer female
     Dosage: 5% GLUCOSE INJECTION 100ML PLUS PIRARUBICIN HYDROCHLORIDE FOR INJECTION 90 MG IVGTT ST D1 Q14D
     Route: 041
     Dates: start: 20220103, end: 20220103
  5. Chlorhexidine Giuconaie [Concomitant]
     Indication: Oral infection
     Dosage: COMPOUND GARGLE SOLUTION
     Route: 048
     Dates: start: 202201
  6. Jinyouli long-acting [Concomitant]
     Indication: Prophylaxis
     Route: 058
     Dates: start: 20220104

REACTIONS (1)
  - Granulocyte count decreased [Recovered/Resolved]

NARRATIVE: CASE EVENT DATE: 20220111
